FAERS Safety Report 18666622 (Version 1)
Quarter: 2020Q4

REPORT INFORMATION
  Report Type: Spontaneous
  Country: DE (occurrence: DE)
  Receive Date: 20201227
  Receipt Date: 20201227
  Transmission Date: 20210114
  Serious: Yes (Other)
  Sender: FDA-Public Use
  Company Number: DE-TEVA-2020-DE-1861265

PATIENT
  Age: 60 Year
  Sex: Female

DRUGS (44)
  1. UNSPECIFIED DEXAMETHASONE [Suspect]
     Active Substance: DEXAMETHASONE
     Dosage: 1 DOSAGE FORM, SINGLE
     Route: 014
     Dates: start: 20181106, end: 20181106
  2. UNSPECIFIED DEXAMETHASONE [Suspect]
     Active Substance: DEXAMETHASONE
     Dosage: 1 DOSAGE FORM, SINGLE
     Route: 014
     Dates: start: 20181016, end: 20181016
  3. LIPOTALON 4MG INJEKTIONSLOESUNG [Suspect]
     Active Substance: DEXAMETHASONE PALMITATE
     Indication: ARTHRALGIA
     Dosage: 1 DOSAGE FORM, SINGLE; RIGHT KNEE AND FOOT
     Route: 014
     Dates: start: 20181120, end: 20181120
  4. PREDNISOLON JENAPHARM [Suspect]
     Active Substance: PREDNISOLONE
     Dosage: 20 MILLIGRAM, TID
     Route: 048
     Dates: start: 201810
  5. HYALURON [HYALURONATE SODIUM] [Concomitant]
     Dosage: 1 DOSAGE FORM, SINGLE; RIGHT KNEE
     Route: 014
     Dates: start: 20181127, end: 20181127
  6. HYALURON [HYALURONATE SODIUM] [Concomitant]
     Dosage: 1 DOSAGE FORM, SINGLE; RIGHT KNEE
     Route: 014
     Dates: start: 20181113, end: 20181113
  7. MEAVERIN [MEPIVACAINE HYDROCHLORIDE] [Concomitant]
     Active Substance: MEPIVACAINE HYDROCHLORIDE
     Dosage: 1 DOSAGE FORM, SINGLE; BOTH KNEES AND FOOT
     Route: 014
     Dates: start: 20181127, end: 20181127
  8. DICLOFENAC [Concomitant]
     Active Substance: DICLOFENAC
     Dosage: 1 MILLILITER, SINGLE
     Route: 014
     Dates: start: 20181113, end: 20181113
  9. UNSPECIFIED DEXAMETHASONE [Suspect]
     Active Substance: DEXAMETHASONE
     Indication: EPICONDYLITIS
     Dosage: 1 DOSAGE FORM, SINGLE
     Route: 014
     Dates: start: 20181019, end: 20181019
  10. PREDNISOLON JENAPHARM [Suspect]
     Active Substance: PREDNISOLONE
     Indication: EPICONDYLITIS
     Dosage: 20 MILLIGRAM DAILY;
     Route: 048
     Dates: start: 2018
  11. MEAVERIN [MEPIVACAINE HYDROCHLORIDE] [Concomitant]
     Active Substance: MEPIVACAINE HYDROCHLORIDE
     Dosage: 1 DOSAGE FORM, SINGLE; RIGHT KNEE
     Route: 014
     Dates: start: 20181106, end: 20181106
  12. DICLOFENAC [Concomitant]
     Active Substance: DICLOFENAC
     Indication: PRODUCT USED FOR UNKNOWN INDICATION
     Dosage: 1 MILLILITER, SINGLE
     Route: 014
     Dates: start: 20181106, end: 20181106
  13. DICLOFENAC [Concomitant]
     Active Substance: DICLOFENAC
     Dosage: 1 MILLILITER, SINGLE
     Route: 014
     Dates: start: 20181130, end: 20181130
  14. DICLOFENAC [Concomitant]
     Active Substance: DICLOFENAC
     Dosage: 1 MILLILITER, SINGLE
     Route: 014
     Dates: start: 20181102, end: 20181102
  15. UNSPECIFIED DEXAMETHASONE [Suspect]
     Active Substance: DEXAMETHASONE
     Indication: ARTHRALGIA
     Dosage: 1 DOSAGE FORM, SINGLE
     Route: 014
     Dates: start: 20181120, end: 20181120
  16. LIPOTALON 4MG INJEKTIONSLOESUNG [Suspect]
     Active Substance: DEXAMETHASONE PALMITATE
     Indication: EPICONDYLITIS
     Dosage: 1 DOSAGE FORM, SINGLE; RIGHT KNEE AND FOOT
     Route: 014
     Dates: start: 20181113, end: 20181113
  17. LIPOTALON 4MG INJEKTIONSLOESUNG [Suspect]
     Active Substance: DEXAMETHASONE PALMITATE
     Dosage: 1 DOSAGE FORM, SINGLE; RIGHT KNEE
     Route: 014
     Dates: start: 20181106, end: 20181106
  18. HYALURON [HYALURONATE SODIUM] [Concomitant]
     Dosage: 1 DOSAGE FORM, SINGLE; RIGHT KNEE
     Route: 014
     Dates: start: 20181120, end: 20181120
  19. MEAVERIN [MEPIVACAINE HYDROCHLORIDE] [Concomitant]
     Active Substance: MEPIVACAINE HYDROCHLORIDE
     Dosage: 1 DOSAGE FORM, SINGLE; RIGHT KNEE
     Route: 014
     Dates: start: 20181102, end: 20181102
  20. MEAVERIN [MEPIVACAINE HYDROCHLORIDE] [Concomitant]
     Active Substance: MEPIVACAINE HYDROCHLORIDE
     Dosage: 1 DOSAGE FORM, SINGLE; RIGHT KNEE AND FOOT
     Route: 014
     Dates: start: 20181113, end: 20181113
  21. DICLOFENAC [Concomitant]
     Active Substance: DICLOFENAC
     Dosage: 1 MILLILITER, SINGLE
     Route: 014
     Dates: start: 20181019, end: 20181019
  22. UNSPECIFIED DEXAMETHASONE [Suspect]
     Active Substance: DEXAMETHASONE
     Dosage: 1 DOSAGE FORM, SINGLE
     Route: 014
     Dates: start: 20181127, end: 20181127
  23. LIPOTALON 4MG INJEKTIONSLOESUNG [Suspect]
     Active Substance: DEXAMETHASONE PALMITATE
     Dosage: 1 DOSAGE FORM, SINGLE; BOTH KNEES AND FOOT
     Route: 014
     Dates: start: 20181204, end: 20181204
  24. LIPOTALON 4MG INJEKTIONSLOESUNG [Suspect]
     Active Substance: DEXAMETHASONE PALMITATE
     Dosage: 1 DOSAGE FORM, SINGLE; LEFT ELBOW
     Route: 014
     Dates: start: 20181016, end: 20181016
  25. MEAVERIN [MEPIVACAINE HYDROCHLORIDE] [Concomitant]
     Active Substance: MEPIVACAINE HYDROCHLORIDE
     Dosage: 1 DOSAGE FORM, SINGLE; LEFT ELBOW
     Route: 014
     Dates: start: 20181016, end: 20181016
  26. MEAVERIN [MEPIVACAINE HYDROCHLORIDE] [Concomitant]
     Active Substance: MEPIVACAINE HYDROCHLORIDE
     Dosage: 1 DOSAGE FORM, SINGLE; BOTH KNEES AND FOOT
     Route: 014
     Dates: start: 20181204, end: 20181204
  27. DICLOFENAC [Concomitant]
     Active Substance: DICLOFENAC
     Dosage: 1 MILLILITER, SINGLE
     Route: 014
     Dates: start: 20181127, end: 20181127
  28. LIPOTALON 4MG INJEKTIONSLOESUNG [Suspect]
     Active Substance: DEXAMETHASONE PALMITATE
     Dosage: 1 DOSAGE FORM, SINGLE; LEFT KNEE
     Route: 014
     Dates: start: 20181130, end: 20181130
  29. TRIAMCINOLON [TRIAMCINOLONE] [Suspect]
     Active Substance: TRIAMCINOLONE
     Indication: INTERVERTEBRAL DISC PROTRUSION
     Dosage: INJECTION THERAPY WITH 4 TRIAMCINOLONE INJECTIONS UNDER ULTRASOUND CONTROL BECAUSE OF A HERNIATED DI
     Dates: start: 2020
  30. UNSPECIFIED DEXAMETHASONE [Suspect]
     Active Substance: DEXAMETHASONE
     Dosage: 1 DOSAGE FORM, SINGLE
     Route: 014
     Dates: start: 20181113, end: 20181113
  31. LIPOTALON 4MG INJEKTIONSLOESUNG [Suspect]
     Active Substance: DEXAMETHASONE PALMITATE
     Dosage: 1 DOSAGE FORM, SINGLE; RIGHT KNEE
     Route: 014
     Dates: start: 20181102, end: 20181102
  32. LIPOTALON 4MG INJEKTIONSLOESUNG [Suspect]
     Active Substance: DEXAMETHASONE PALMITATE
     Dosage: 1 DOSAGE FORM, SINGLE; BOTH KNEES AND FOOT
     Route: 014
     Dates: start: 20181127, end: 20181127
  33. PREDNISOLON JENAPHARM [Suspect]
     Active Substance: PREDNISOLONE
     Indication: ARTHRALGIA
     Dosage: 30X 20 MG
     Route: 048
     Dates: start: 20181204, end: 20181215
  34. HYALURON [HYALURONATE SODIUM] [Concomitant]
     Dosage: 1 DOSAGE FORM, SINGLE; BOTH KNEES
     Route: 014
     Dates: start: 20181204, end: 20181204
  35. MEAVERIN [MEPIVACAINE HYDROCHLORIDE] [Concomitant]
     Active Substance: MEPIVACAINE HYDROCHLORIDE
     Dosage: 1 DOSAGE FORM, SINGLE; LEFT KNEE
     Route: 014
     Dates: start: 20181130, end: 20181130
  36. UNSPECIFIED DEXAMETHASONE [Suspect]
     Active Substance: DEXAMETHASONE
     Dosage: 1 DOSAGE FORM, SINGLE
     Route: 014
     Dates: start: 20181130, end: 20181130
  37. LIPOTALON 4MG INJEKTIONSLOESUNG [Suspect]
     Active Substance: DEXAMETHASONE PALMITATE
     Dosage: 1 DOSAGE FORM, SINGLE; LEFT ELBOW
     Route: 014
     Dates: start: 20181019, end: 20181019
  38. PREDNISOLON JENAPHARM [Suspect]
     Active Substance: PREDNISOLONE
     Dosage: 20 MILLIGRAM, BID
     Route: 048
     Dates: start: 201810
  39. HYALURON [HYALURONATE SODIUM] [Concomitant]
     Indication: PRODUCT USED FOR UNKNOWN INDICATION
     Dosage: 1 DOSAGE FORM, SINGLE; RIGHT KNEE
     Route: 014
     Dates: start: 20181106, end: 20181106
  40. DICLOFENAC [Concomitant]
     Active Substance: DICLOFENAC
     Dosage: 1 MILLILITER, SINGLE
     Route: 014
     Dates: start: 20181120, end: 20181120
  41. UNSPECIFIED DEXAMETHASONE [Suspect]
     Active Substance: DEXAMETHASONE
     Dosage: 1 DOSAGE FORM, SINGLE
     Route: 014
     Dates: start: 20181102, end: 20181102
  42. MEAVERIN [MEPIVACAINE HYDROCHLORIDE] [Concomitant]
     Active Substance: MEPIVACAINE HYDROCHLORIDE
     Indication: PRODUCT USED FOR UNKNOWN INDICATION
     Dosage: 1 DOSAGE FORM, SINGLE; RIGHT KNEE AND FOOT
     Route: 014
     Dates: start: 20181120, end: 20181120
  43. MEAVERIN [MEPIVACAINE HYDROCHLORIDE] [Concomitant]
     Active Substance: MEPIVACAINE HYDROCHLORIDE
     Dosage: 1 DOSAGE FORM, SINGLE; LEFT ELBOW
     Route: 014
     Dates: start: 20181019, end: 20181019
  44. DICLOFENAC [Concomitant]
     Active Substance: DICLOFENAC
     Dosage: 1 MILLILITER, SINGLE
     Route: 014
     Dates: start: 20181016, end: 20181016

REACTIONS (20)
  - Blood glucose increased [Not Recovered/Not Resolved]
  - Joint instability [Not Recovered/Not Resolved]
  - Cushing^s syndrome [Not Recovered/Not Resolved]
  - Blood pressure increased [Not Recovered/Not Resolved]
  - Disturbance in attention [Not Recovered/Not Resolved]
  - Cystocele [Not Recovered/Not Resolved]
  - Influenza like illness [Not Recovered/Not Resolved]
  - Emphysema [Not Recovered/Not Resolved]
  - Pelvic floor muscle weakness [Not Recovered/Not Resolved]
  - Nausea [Recovered/Resolved]
  - Inappropriate schedule of product administration [Not Recovered/Not Resolved]
  - Dermatitis allergic [Not Recovered/Not Resolved]
  - Application site pain [Not Recovered/Not Resolved]
  - Sleep disorder [Not Recovered/Not Resolved]
  - Balance disorder [Not Recovered/Not Resolved]
  - Muscular weakness [Not Recovered/Not Resolved]
  - Hallucination [Not Recovered/Not Resolved]
  - Arthralgia [Not Recovered/Not Resolved]
  - Fluid retention [Not Recovered/Not Resolved]
  - Pyrexia [Not Recovered/Not Resolved]

NARRATIVE: CASE EVENT DATE: 2018
